FAERS Safety Report 9855700 (Version 1)
Quarter: 2014Q1

REPORT INFORMATION
  Report Type: Spontaneous
  Country: CL (occurrence: CL)
  Receive Date: 20140130
  Receipt Date: 20140130
  Transmission Date: 20141002
  Serious: Yes (Other)
  Sender: FDA-Public Use
  Company Number: CL-PFIZER INC-2014025418

PATIENT
  Age: 70 Year
  Sex: Female

DRUGS (2)
  1. XALATAN [Suspect]
     Indication: GLAUCOMA
     Dosage: 1 GTT, 1X/DAY (1 DROP ON EACH EYE EVERY NIGHT)
     Route: 047
     Dates: start: 2009, end: 2011
  2. XALACOM [Suspect]
     Indication: GLAUCOMA
     Dosage: 1 GTT, 1X/DAY (1 DROP ON EACH EYE EVERY NIGHT)
     Route: 047
     Dates: start: 2011

REACTIONS (1)
  - Lung disorder [Recovered/Resolved]
